FAERS Safety Report 10206833 (Version 1)
Quarter: 2014Q2

REPORT INFORMATION
  Report Type: Spontaneous
  Country: US (occurrence: None)
  Receive Date: 20140527
  Receipt Date: 20140527
  Transmission Date: 20141212
  Serious: Yes (Other)
  Sender: FDA-Public Use
  Company Number: None

PATIENT
  Age: 48 Year
  Sex: Male
  Weight: 103.42 kg

DRUGS (1)
  1. NUTROPIN [Suspect]
     Indication: DWARFISM
     Route: 058

REACTIONS (4)
  - Headache [None]
  - Dizziness [None]
  - Loss of consciousness [None]
  - Abnormal behaviour [None]
